FAERS Safety Report 6928085-9 (Version None)
Quarter: 2010Q3

REPORT INFORMATION
  Report Type: 
  Country: None (occurrence: None)
  Receive Date: 20100812
  Receipt Date: 20100727
  Transmission Date: 20110219
  Serious: Yes (Hospitalization)
  Sender: FDA-Public Use
  Company Number: 2010BI027232

PATIENT
  Age: 33 Year
  Sex: Female

DRUGS (2)
  1. ZEVALIN [Suspect]
     Indication: NON-HODGKIN'S LYMPHOMA RECURRENT
     Dosage: 0.4 MCI/KG;IV
     Route: 042
  2. ZEVALIN [Suspect]
     Indication: STEM CELL TRANSPLANT
     Dosage: 0.4 MCI/KG;IV
     Route: 042

REACTIONS (3)
  - ANAEMIA [None]
  - ASTHENIA [None]
  - PYREXIA [None]
